FAERS Safety Report 8657874 (Version 2)
Quarter: 2012Q4

REPORT INFORMATION
  Report Type: 
  Country: IT (occurrence: IT)
  Receive Date: 20120710
  Receipt Date: 20121026
  Transmission Date: 20130627
  Serious: Yes (Hospitalization)
  Sender: FDA-Public Use
  Company Number: IT-PFIZER INC-2012159984

PATIENT
  Age: 55 Year
  Sex: Male

DRUGS (3)
  1. SALAZOPYRIN [Suspect]
     Indication: COLITIS ULCERATIVE
     Dosage: 500 mg, 4x/day
     Route: 048
     Dates: start: 20120321, end: 20120702
  2. AZATHIOPRINE [Suspect]
     Indication: COLITIS ULCERATIVE
     Dosage: 50 mg, 2x/day
     Route: 048
     Dates: start: 20120429, end: 20120519
  3. CLIPPER [Concomitant]
     Dosage: 2 DF, UNK
     Route: 048

REACTIONS (3)
  - Abdominal pain upper [Recovered/Resolved]
  - Vomiting [Recovered/Resolved]
  - Amylase increased [Recovered/Resolved]
